FAERS Safety Report 14646079 (Version 4)
Quarter: 2018Q2

REPORT INFORMATION
  Report Type: Spontaneous
  Country: RU (occurrence: RU)
  Receive Date: 20180316
  Receipt Date: 20180502
  Transmission Date: 20180711
  Serious: Yes (Hospitalization)
  Sender: FDA-Public Use
  Company Number: RU-BIOGEN-2018BI00540649

PATIENT
  Age: 50 Year
  Sex: Male

DRUGS (1)
  1. TYSABRI [Suspect]
     Active Substance: NATALIZUMAB
     Indication: MULTIPLE SCLEROSIS
     Dosage: NATALIZUMAB 300 MG PER 100 ML OF PHYSIOLOGICAL SALINE IV/DROP SPEED OF 2 ML PER MIN - ABOUT 1 HOUR
     Route: 065
     Dates: start: 201609

REACTIONS (2)
  - Pneumonia [Unknown]
  - Respiratory tract infection viral [Unknown]

NARRATIVE: CASE EVENT DATE: 2017
